FAERS Safety Report 7605159-0 (Version None)
Quarter: 2011Q3

REPORT INFORMATION
  Report Type: 
  Country: None (occurrence: None)
  Receive Date: 20110713
  Receipt Date: 20110622
  Transmission Date: 20111222
  Serious: Yes (Disabling)
  Sender: FDA-Public Use
  Company Number: CA-BAYER-2011-054105

PATIENT
  Age: 63 Year
  Sex: Male
  Weight: 72.562 kg

DRUGS (2)
  1. CIPROFLOXACIN HCL [Suspect]
     Dosage: 1000 MG, UNK
  2. CIPROFLOXACIN HCL [Suspect]
     Indication: PRODUCT USED FOR UNKNOWN INDICATION
     Dosage: 500 MG, UNK

REACTIONS (2)
  - TOXICITY TO VARIOUS AGENTS [None]
  - PERIPHERAL SENSORY NEUROPATHY [None]
